FAERS Safety Report 14028170 (Version 1)
Quarter: 2017Q3

REPORT INFORMATION
  Report Type: Spontaneous
  Country: US (occurrence: US)
  Receive Date: 20170930
  Receipt Date: 20170930
  Transmission Date: 20171128
  Serious: No
  Sender: FDA-Public Use
  Company Number: None

PATIENT
  Age: 67 Year
  Sex: Female
  Weight: 54 kg

DRUGS (11)
  1. CITRACIL [Concomitant]
  2. MIRALAX [Concomitant]
     Active Substance: POLYETHYLENE GLYCOL 3350
  3. CALCIUM [Concomitant]
     Active Substance: CALCIUM
  4. BACLOFEN. [Concomitant]
     Active Substance: BACLOFEN
  5. TIZANADINE [Concomitant]
     Active Substance: TIZANIDINE
  6. VITAMIN B12 [Concomitant]
     Active Substance: CYANOCOBALAMIN
  7. OCREVUS [Suspect]
     Active Substance: OCRELIZUMAB
     Indication: DISEASE PROGRESSION
     Dosage: STRENGTH - 300 MG 1 LITRE(S)
     Dates: start: 20170620, end: 20170620
  8. OCREVUS [Suspect]
     Active Substance: OCRELIZUMAB
     Indication: PROPHYLAXIS
     Dosage: STRENGTH - 300 MG 1 LITRE(S)
     Dates: start: 20170620, end: 20170620
  9. OCREVUS [Suspect]
     Active Substance: OCRELIZUMAB
     Indication: PRIMARY PROGRESSIVE MULTIPLE SCLEROSIS
     Dosage: STRENGTH - 300 MG 1 LITRE(S)
     Dates: start: 20170620, end: 20170620
  10. VITAMIN D [Concomitant]
     Active Substance: CHOLECALCIFEROL
  11. VENLAFAXINE [Concomitant]
     Active Substance: VENLAFAXINE HYDROCHLORIDE

REACTIONS (1)
  - Multiple sclerosis [None]

NARRATIVE: CASE EVENT DATE: 20170621
